FAERS Safety Report 6795538-6 (Version None)
Quarter: 2010Q2

REPORT INFORMATION
  Report Type: 
  Country: None (occurrence: None)
  Receive Date: 20100625
  Receipt Date: 20100617
  Transmission Date: 20101027
  Serious: Yes (Other)
  Sender: FDA-Public Use
  Company Number: GB-AMGEN-QUU413897

PATIENT
  Sex: Male

DRUGS (2)
  1. ARANESP [Suspect]
     Indication: RENAL FAILURE CHRONIC
  2. MYCOPHENOLATE MOFETIL [Concomitant]

REACTIONS (2)
  - APLASIA PURE RED CELL [None]
  - PARVOVIRUS INFECTION [None]
